FAERS Safety Report 10739022 (Version 1)
Quarter: 2015Q1

REPORT INFORMATION
  Report Type: Spontaneous
  Country: US (occurrence: US)
  Receive Date: 20150126
  Receipt Date: 20150126
  Transmission Date: 20150721
  Serious: Yes (Hospitalization, Other)
  Sender: FDA-Public Use
  Company Number: US-GLAXOSMITHKLINE-US2015009200

PATIENT
  Age: 80 Year
  Sex: Male

DRUGS (17)
  1. ALPRAZOLAM. [Concomitant]
     Active Substance: ALPRAZOLAM
  2. AZITHROMYCIN [Concomitant]
     Active Substance: AZITHROMYCIN ANHYDROUS
  3. B12 SHOT [Concomitant]
  4. COUMADIN [Concomitant]
     Active Substance: WARFARIN SODIUM
  5. IRON [Concomitant]
     Active Substance: IRON
  6. ASPIRIN. [Concomitant]
     Active Substance: ASPIRIN
  7. CEFPODOXIME [Concomitant]
     Active Substance: CEFPODOXIME
  8. SPIRONOLACTONE. [Concomitant]
     Active Substance: SPIRONOLACTONE
  9. LISINOPRIL. [Concomitant]
     Active Substance: LISINOPRIL
  10. SPIRIVA [Concomitant]
     Active Substance: TIOTROPIUM BROMIDE MONOHYDRATE
  11. ADVAIR DISKUS [Suspect]
     Active Substance: FLUTICASONE PROPIONATE\SALMETEROL XINAFOATE
     Indication: CHRONIC OBSTRUCTIVE PULMONARY DISEASE
     Dosage: 100/50
     Route: 055
     Dates: start: 2012
  12. DICLOFENAC SODIUM. [Concomitant]
     Active Substance: DICLOFENAC SODIUM
  13. SIMVASTATIN. [Concomitant]
     Active Substance: SIMVASTATIN
  14. HYDROCORTISONE. [Concomitant]
     Active Substance: HYDROCORTISONE
  15. OXYGEN. [Concomitant]
     Active Substance: OXYGEN
  16. METOPROLOL SUCCINATE. [Concomitant]
     Active Substance: METOPROLOL SUCCINATE
  17. FOLIC ACID. [Concomitant]
     Active Substance: FOLIC ACID

REACTIONS (3)
  - Pneumonia [Recovered/Resolved]
  - Hospitalisation [Unknown]
  - Rehabilitation therapy [Unknown]

NARRATIVE: CASE EVENT DATE: 2014
